FAERS Safety Report 5284668-6 (Version None)
Quarter: 2007Q2

REPORT INFORMATION
  Report Type: 
  Country: None (occurrence: None)
  Receive Date: 20070403
  Receipt Date: 20070323
  Transmission Date: 20071010
  Serious: Yes (Hospitalization)
  Sender: FDA-Public Use
  Company Number: US-ROCHE-489295

PATIENT
  Age: 74 Year
  Sex: Female

DRUGS (6)
  1. CAPECITABINE [Suspect]
     Route: 048
     Dates: start: 20061108
  2. LAPATINIB [Suspect]
     Route: 048
     Dates: start: 20061108
  3. LETROZOLE [Concomitant]
  4. ENALAPRIL MALEATE [Concomitant]
  5. PANTOPRAZOLE [Concomitant]
  6. ZOLEDRONIC ACID [Concomitant]

REACTIONS (2)
  - ABDOMINAL PAIN [None]
  - PANCREATITIS [None]
